FAERS Safety Report 10103537 (Version 1)
Quarter: 2014Q2

REPORT INFORMATION
  Report Type: Spontaneous
  Country: US (occurrence: US)
  Receive Date: 20140424
  Receipt Date: 20140424
  Transmission Date: 20141212
  Serious: No
  Sender: FDA-Public Use
  Company Number: US-BRISTOL-MYERS SQUIBB COMPANY-20539193

PATIENT
  Age: 84 Year
  Sex: Male
  Weight: 88.43 kg

DRUGS (7)
  1. ELIQUIS [Suspect]
  2. METOPROLOL [Concomitant]
  3. PRILOSEC [Concomitant]
     Indication: GASTROOESOPHAGEAL REFLUX DISEASE
  4. LIPITOR [Concomitant]
  5. VITAMIN [Concomitant]
  6. FISH OIL [Concomitant]
     Dosage: 1DF:1400 UNITS
  7. MULTIVITAMINS [Concomitant]

REACTIONS (3)
  - Haemoptysis [Unknown]
  - Vomiting [Unknown]
  - Drug dose omission [Unknown]
